FAERS Safety Report 5659136-X (Version None)
Quarter: 2008Q1

REPORT INFORMATION
  Report Type: 
  Country: None (occurrence: None)
  Receive Date: 20080311
  Receipt Date: 20070606
  Transmission Date: 20080703
  Serious: No
  Sender: FDA-Public Use
  Company Number: US-BAYER-200513995BCC

PATIENT
  Age: 40 Year
  Sex: Female
  Weight: 59 kg

DRUGS (2)
  1. ALEVE [Suspect]
     Indication: ABDOMINAL PAIN
     Dosage: TOTAL DAILY DOSE: 880 MG  UNIT DOSE: 220 MG
     Route: 048
     Dates: start: 20051002
  2. PROZAC [Concomitant]

REACTIONS (5)
  - ABDOMINAL DISTENSION [None]
  - CHEST DISCOMFORT [None]
  - RESPIRATORY TRACT IRRITATION [None]
  - STOMACH DISCOMFORT [None]
  - WEIGHT INCREASED [None]
